FAERS Safety Report 5931075-6 (Version None)
Quarter: 2008Q4

REPORT INFORMATION
  Report Type: 
  Country: None (occurrence: None)
  Receive Date: 20081022
  Receipt Date: 20081009
  Transmission Date: 20090506
  Serious: Yes (Life-Threatening, Hospitalization, Other)
  Sender: FDA-Public Use
  Company Number: URSO-2008-098FUP#1

PATIENT
  Age: 82 Year
  Sex: Female

DRUGS (11)
  1. URSO 250 [Suspect]
     Indication: CHOLELITHIASIS
     Dosage: 200 MG/DAY ORAL
     Route: 048
     Dates: start: 19890101, end: 20080815
  2. ENALAPRIL MALEATE [Suspect]
     Indication: HYPERTENSION
     Dosage: 5 DF ORAL
     Route: 048
     Dates: start: 20080416, end: 20080815
  3. AMLODIPINE BESYLATE [Concomitant]
  4. ASPIRIN [Concomitant]
  5. MUCODYNE (CARBOCISTEINE) [Concomitant]
  6. UNIPHYL [Concomitant]
  7. CLARITIN [Concomitant]
  8. SINGULAIR [Concomitant]
  9. INTAL [Concomitant]
  10. PULMICORT [Concomitant]
  11. MOHRUS TAPE (KETOPROFEN) [Concomitant]

REACTIONS (21)
  - ALLERGIC GRANULOMATOUS ANGIITIS [None]
  - ASTHMA [None]
  - CEREBRAL INFARCTION [None]
  - COUGH [None]
  - HAEMATURIA [None]
  - HYPERSENSITIVITY [None]
  - HYPOALBUMINAEMIA [None]
  - HYPOGLOBULINAEMIA [None]
  - IMMUNE COMPLEX LEVEL INCREASED [None]
  - LEUKOCYTOCLASTIC VASCULITIS [None]
  - NASAL CONGESTION [None]
  - NEPHROPATHY [None]
  - NEPHROTIC SYNDROME [None]
  - OEDEMA [None]
  - PRODUCTIVE COUGH [None]
  - PROTEINURIA [None]
  - PURPURA [None]
  - RHINITIS [None]
  - RHINITIS ALLERGIC [None]
  - TUBULOINTERSTITIAL NEPHRITIS [None]
  - VASCULITIS [None]
